FAERS Safety Report 9253395 (Version 2)
Quarter: 2013Q3

REPORT INFORMATION
  Report Type: Spontaneous
  Country: US (occurrence: US)
  Receive Date: 20130425
  Receipt Date: 20130910
  Transmission Date: 20140515
  Serious: Yes (Hospitalization, Disabling)
  Sender: FDA-Public Use
  Company Number: US-ASTRAZENECA-2013SE27288

PATIENT
  Sex: Male

DRUGS (29)
  1. NEXIUM [Suspect]
     Indication: GASTROOESOPHAGEAL REFLUX DISEASE
     Dosage: TWO TIMES A DAY
     Route: 048
     Dates: start: 1999
  2. NEXIUM [Suspect]
     Indication: LARGE INTESTINE POLYP
     Dosage: TWO TIMES A DAY
     Route: 048
     Dates: start: 1999
  3. NEXIUM [Suspect]
     Indication: GASTROOESOPHAGEAL REFLUX DISEASE
     Dosage: TWO TIMES A DAY
     Route: 048
     Dates: start: 1999
  4. NEXIUM [Suspect]
     Indication: DIVERTICULITIS
     Dosage: TWO TIMES A DAY
     Route: 048
     Dates: start: 1999
  5. NEXIUM [Suspect]
     Indication: OESOPHAGEAL DISORDER
     Dosage: TWO TIMES A DAY
     Route: 048
     Dates: start: 1999
  6. PRILOSEC [Suspect]
     Indication: GASTROOESOPHAGEAL REFLUX DISEASE
     Route: 048
     Dates: start: 1999
  7. PRILOSEC [Suspect]
     Indication: LARGE INTESTINE POLYP
     Route: 048
     Dates: start: 1999
  8. PRILOSEC [Suspect]
     Indication: GASTROOESOPHAGEAL REFLUX DISEASE
     Route: 048
     Dates: start: 1999
  9. PRILOSEC [Suspect]
     Indication: DIVERTICULITIS
     Route: 048
     Dates: start: 1999
  10. PRILOSEC [Suspect]
     Indication: OESOPHAGEAL DISORDER
     Route: 048
     Dates: start: 1999
  11. PRILOSEC [Suspect]
     Indication: GASTROOESOPHAGEAL REFLUX DISEASE
     Dosage: GENERIC
     Route: 065
     Dates: start: 1999
  12. PRILOSEC [Suspect]
     Indication: LARGE INTESTINE POLYP
     Dosage: GENERIC
     Route: 065
     Dates: start: 1999
  13. PRILOSEC [Suspect]
     Indication: GASTROOESOPHAGEAL REFLUX DISEASE
     Dosage: GENERIC
     Route: 065
     Dates: start: 1999
  14. PRILOSEC [Suspect]
     Indication: DIVERTICULITIS
     Dosage: GENERIC
     Route: 065
     Dates: start: 1999
  15. PRILOSEC [Suspect]
     Indication: OESOPHAGEAL DISORDER
     Dosage: GENERIC
     Route: 065
     Dates: start: 1999
  16. PROTONIX [Concomitant]
     Indication: GASTROOESOPHAGEAL REFLUX DISEASE
     Dates: start: 1999
  17. PROTONIX [Concomitant]
     Indication: LARGE INTESTINE POLYP
     Dates: start: 1999
  18. PROTONIX [Concomitant]
     Indication: GASTROOESOPHAGEAL REFLUX DISEASE
     Dates: start: 1999
  19. PROTONIX [Concomitant]
     Indication: DIVERTICULITIS
     Dates: start: 1999
  20. PROTONIX [Concomitant]
     Indication: OESOPHAGEAL DISORDER
     Dates: start: 1999
  21. PREVACID [Concomitant]
     Indication: GASTROOESOPHAGEAL REFLUX DISEASE
     Dates: start: 1999
  22. PREVACID [Concomitant]
     Indication: LARGE INTESTINE POLYP
     Dates: start: 1999
  23. PREVACID [Concomitant]
     Indication: GASTROOESOPHAGEAL REFLUX DISEASE
     Dates: start: 1999
  24. PREVACID [Concomitant]
     Indication: DIVERTICULITIS
     Dates: start: 1999
  25. PREVACID [Concomitant]
     Indication: OESOPHAGEAL DISORDER
     Dates: start: 1999
  26. ROLAIDS [Concomitant]
  27. VALTREX [Concomitant]
     Indication: MOUTH ULCERATION
  28. COLACE [Concomitant]
     Indication: ABDOMINAL DISCOMFORT
  29. TRAZODONE [Concomitant]
     Indication: SLEEP DISORDER

REACTIONS (16)
  - Neck pain [Unknown]
  - Back pain [Unknown]
  - Osteoporosis [Unknown]
  - Bone disorder [Unknown]
  - Foot fracture [Unknown]
  - Influenza like illness [Unknown]
  - Chest pain [Unknown]
  - Condition aggravated [Unknown]
  - Panic attack [Unknown]
  - Arthritis [Unknown]
  - Androgen deficiency [Unknown]
  - Intervertebral disc degeneration [Unknown]
  - Abdominal pain [Unknown]
  - Face oedema [Unknown]
  - Constipation [Unknown]
  - Dry mouth [Unknown]
